FAERS Safety Report 25301413 (Version 1)
Quarter: 2025Q2

REPORT INFORMATION
  Report Type: Spontaneous
  Country: US (occurrence: None)
  Receive Date: 20250512
  Receipt Date: 20250512
  Transmission Date: 20250717
  Serious: Yes (Hospitalization)
  Sender: FDA-CTU
  Company Number: None

PATIENT
  Age: 84 Year
  Sex: Female

DRUGS (1)
  1. LENALIDOMIDE [Suspect]
     Active Substance: LENALIDOMIDE
     Indication: Plasma cell myeloma
     Dosage: FREQUENCY : DAILY;?

REACTIONS (11)
  - Impaired quality of life [None]
  - Weight decreased [None]
  - Skin disorder [None]
  - Blood potassium decreased [None]
  - Blood magnesium decreased [None]
  - Diarrhoea [None]
  - Amnesia [None]
  - Asthenia [None]
  - Increased need for sleep [None]
  - Asthenia [None]
  - Decreased interest [None]

NARRATIVE: CASE EVENT DATE: 20250507
